FAERS Safety Report 15102970 (Version 2)
Quarter: 2018Q3

REPORT INFORMATION
  Report Type: Spontaneous
  Country: US (occurrence: US)
  Receive Date: 20180703
  Receipt Date: 20180801
  Transmission Date: 20181010
  Serious: No
  Sender: FDA-Public Use
  Company Number: US-ASTRAZENECA-2018SE79336

PATIENT
  Age: 27998 Day
  Sex: Male
  Weight: 59 kg

DRUGS (5)
  1. TUDORZA PRESSAIR [Suspect]
     Active Substance: ACLIDINIUM BROMIDE
     Indication: CHRONIC OBSTRUCTIVE PULMONARY DISEASE
     Route: 055
  2. SYMBICORT [Suspect]
     Active Substance: BUDESONIDE\FORMOTEROL FUMARATE DIHYDRATE
     Dosage: 160/4.5 MCG 2 PUFFS TWO TIMES A DAY
     Route: 055
  3. SINGULAIR [Concomitant]
     Active Substance: MONTELUKAST SODIUM
     Route: 048
  4. OMALIZUMAB. [Concomitant]
     Active Substance: OMALIZUMAB
     Route: 058
  5. TUDORZA PRESSAIR [Suspect]
     Active Substance: ACLIDINIUM BROMIDE
     Indication: EMPHYSEMA
     Route: 055

REACTIONS (5)
  - Drug dose omission [Unknown]
  - Frustration tolerance decreased [Unknown]
  - Device issue [Unknown]
  - Dyspnoea [Unknown]
  - Body height decreased [Unknown]

NARRATIVE: CASE EVENT DATE: 20180614
